FAERS Safety Report 8202835 (Version 2)
Quarter: 2012Q4

REPORT INFORMATION
  Report Type: Report from Study
  Country: US (occurrence: US)
  Receive Date: 20111027
  Receipt Date: 20121116
  Transmission Date: 20130627
  Serious: Yes (Hospitalization, Other)
  Sender: FDA-Public Use
  Company Number: US-ABBOTT-11P-163-0867513-00

PATIENT
  Sex: Male
  Weight: 63.56 kg

DRUGS (6)
  1. HUMIRA 40 MG/0.8 ML PEN [Suspect]
     Indication: CROHN^S DISEASE
     Dates: start: 201101, end: 201107
  2. HUMIRA 40 MG/0.8 ML PEN [Suspect]
     Dates: start: 201202
  3. ZYVOX [Concomitant]
     Indication: PRODUCT USED FOR UNKNOWN INDICATION
     Dates: start: 201202
  4. VITAMINS [Concomitant]
     Indication: VITAMIN SUPPLEMENTATION
  5. 6-MP [Concomitant]
     Indication: PRODUCT USED FOR UNKNOWN INDICATION
     Dates: start: 201202
  6. CIPROFLOXACIN [Concomitant]
     Indication: PRODUCT USED FOR UNKNOWN INDICATION
     Dates: start: 201202

REACTIONS (18)
  - Depression [Not Recovered/Not Resolved]
  - Asthenia [Not Recovered/Not Resolved]
  - Anaemia [Not Recovered/Not Resolved]
  - Intestinal obstruction [Recovering/Resolving]
  - Post procedural complication [Recovering/Resolving]
  - Infection [Recovering/Resolving]
  - Fistula [Recovering/Resolving]
  - Abdominal adhesions [Recovering/Resolving]
  - Small intestinal stenosis [Recovering/Resolving]
  - Pyrexia [Recovered/Resolved]
  - Abdominal pain [Recovering/Resolving]
  - Abdominal abscess [Recovering/Resolving]
  - Localised intraabdominal fluid collection [Recovering/Resolving]
  - Localised intraabdominal fluid collection [Recovering/Resolving]
  - Thrombosis in device [Recovered/Resolved]
  - Intestinal fistula [Not Recovered/Not Resolved]
  - Intestinal obstruction [Recovered/Resolved]
  - Localised intraabdominal fluid collection [Recovering/Resolving]
